FAERS Safety Report 5593271-X (Version None)
Quarter: 2008Q1

REPORT INFORMATION
  Report Type: 
  Country: None (occurrence: None)
  Receive Date: 20080114
  Receipt Date: 20071228
  Transmission Date: 20080703
  Serious: Yes (Other)
  Sender: FDA-Public Use
  Company Number: VER_00095_2007

PATIENT
  Sex: Female
  Weight: 51.2565 kg

DRUGS (7)
  1. EPINEPHRINE [Suspect]
     Indication: ANAPHYLACTIC REACTION
     Dosage: (0.3 MG, SUBCUTANEOUS)
     Route: 058
     Dates: start: 20070801
  2. XOPENEX [Concomitant]
  3. ADVAIR DISKUS 100/50 [Concomitant]
  4. ATROVENT [Concomitant]
  5. ASTELIN [Concomitant]
  6. TOPIRAMATE [Concomitant]
  7. RELPAX [Concomitant]

REACTIONS (4)
  - DEVICE FAILURE [None]
  - HEART RATE INCREASED [None]
  - PHARMACEUTICAL PRODUCT COMPLAINT [None]
  - TREMOR [None]
